FAERS Safety Report 14220233 (Version 1)
Quarter: 2017Q4

REPORT INFORMATION
  Report Type: Spontaneous
  Country: US (occurrence: US)
  Receive Date: 20171123
  Receipt Date: 20171123
  Transmission Date: 20180321
  Serious: Yes (Other)
  Sender: FDA-Public Use
  Company Number: US-JNJFOC-20171026654

PATIENT
  Sex: Female
  Weight: 72.58 kg

DRUGS (3)
  1. TOPAMAX [Suspect]
     Active Substance: TOPIRAMATE
     Indication: SEIZURE
     Route: 048
     Dates: start: 2016, end: 201701
  2. TOPIRAMATE. [Suspect]
     Active Substance: TOPIRAMATE
     Indication: SEIZURE
     Route: 065
     Dates: start: 201701, end: 201708
  3. TOPAMAX [Suspect]
     Active Substance: TOPIRAMATE
     Indication: SEIZURE
     Route: 048
     Dates: start: 2017, end: 201708

REACTIONS (7)
  - Seborrhoeic dermatitis [Unknown]
  - Toxicity to various agents [Unknown]
  - Asthenia [Unknown]
  - Vaginal ulceration [Unknown]
  - Dizziness [Unknown]
  - Abnormal loss of weight [Unknown]
  - Dehydration [Unknown]

NARRATIVE: CASE EVENT DATE: 2016
